FAERS Safety Report 4286524-9 (Version None)
Quarter: 2004Q1

REPORT INFORMATION
  Report Type: 
  Country: None (occurrence: None)
  Receive Date: 20040205
  Receipt Date: 20040205
  Transmission Date: 20041129
  Serious: Yes (Other)
  Sender: FDA-Public Use
  Company Number: None

PATIENT
  Sex: Female

DRUGS (1)
  1. DR. SCHOLL'S CALLUS REMOVERS DISC [Suspect]
     Indication: HYPERKERATOSIS
     Dosage: TOP-DERM
     Route: 061

REACTIONS (4)
  - BONE DISORDER [None]
  - DRUG INEFFECTIVE [None]
  - LIMB INJURY [None]
  - POST PROCEDURAL COMPLICATION [None]
